FAERS Safety Report 9781647 (Version 1)
Quarter: 2013Q4

REPORT INFORMATION
  Report Type: Spontaneous
  Country: JP (occurrence: JP)
  Receive Date: 20131224
  Receipt Date: 20131224
  Transmission Date: 20140711
  Serious: Yes (Other)
  Sender: FDA-Public Use
  Company Number: CHPA2013JP018774

PATIENT
  Sex: Female

DRUGS (1)
  1. PURSENNID [Suspect]
     Dosage: 2 DF, QD
     Route: 048

REACTIONS (1)
  - Hepatic function abnormal [Unknown]
